FAERS Safety Report 5877500-0 (Version None)
Quarter: 2008Q3

REPORT INFORMATION
  Report Type: 
  Country: None (occurrence: None)
  Receive Date: 20080909
  Receipt Date: 20080904
  Transmission Date: 20090109
  Serious: Yes (Hospitalization)
  Sender: FDA-Public Use
  Company Number: US024546

PATIENT
  Sex: Male

DRUGS (1)
  1. TREANDA [Suspect]
     Indication: LYMPHOMA
     Dosage: INTRAMUSCULAR
     Route: 030
     Dates: start: 20080701

REACTIONS (4)
  - FUNGAL INFECTION [None]
  - LUNG INFECTION [None]
  - RESPIRATORY FAILURE [None]
  - RESPIRATORY TRACT INFECTION [None]
